FAERS Safety Report 15601877 (Version 1)
Quarter: 2018Q4

REPORT INFORMATION
  Report Type: Spontaneous
  Country: FR (occurrence: FR)
  Receive Date: 20181109
  Receipt Date: 20181109
  Transmission Date: 20190205
  Serious: Yes (Hospitalization, Other)
  Sender: FDA-Public Use
  Company Number: FR-MYLANLABS-2018M1084203

PATIENT
  Age: 74 Year
  Sex: Female
  Weight: 111 kg

DRUGS (1)
  1. METHOTREXATE MYLAN [Suspect]
     Active Substance: METHOTREXATE SODIUM
     Indication: LYMPHOMA
     Dosage: 3000 MG/M2, UNK
     Route: 042

REACTIONS (2)
  - Acute kidney injury [Not Recovered/Not Resolved]
  - Chemotherapeutic drug level above therapeutic [Not Recovered/Not Resolved]

NARRATIVE: CASE EVENT DATE: 20180606
